FAERS Safety Report 9648550 (Version 1)
Quarter: 2013Q4

REPORT INFORMATION
  Report Type: Spontaneous
  Country: US (occurrence: None)
  Receive Date: 20131024
  Receipt Date: 20131024
  Transmission Date: 20140711
  Serious: Yes (Hospitalization, Disabling, Other)
  Sender: FDA-Public Use
  Company Number: 2013AP008985

PATIENT
  Age: 35 Year
  Sex: Female

DRUGS (64)
  1. LISINOPRIL [Suspect]
     Route: 048
  2. OMEPRAZOLE [Suspect]
     Route: 048
  3. CLONAZEPAM [Suspect]
     Indication: MUSCLE SPASMS
  4. AMLODIPINE BESYLATE TABLETS [Suspect]
  5. GABAPENTIN [Suspect]
  6. DICLOFENAC SODIUM [Suspect]
  7. FLUTICASONE PROPIONATE NASAL SPRAY [Suspect]
     Route: 045
  8. KETOCONAZOLE [Suspect]
  9. TRAMADOL HYDROCHLORIDE TABLETS [Suspect]
  10. VERAPAMIL HYDROCHLORIDE [Suspect]
     Indication: HYPERTENSION
  11. AMOXICILLIN AND CLAVULANATE POTASSIUM [Suspect]
  12. BUPROPION HYDROCHLORIDE TABLETS [Suspect]
  13. CARBIDOPA AND LEVODOPA [Suspect]
  14. CETIRIZINE HYDROCHLORIDE [Suspect]
  15. LATANOPROST [Suspect]
  16. MELOXICAM TABLETS [Suspect]
  17. RIZATRIPTAN BENZOATE [Suspect]
  18. TRAZODONE [Suspect]
  19. LOSARTAN POTASSIUM TABLETS [Suspect]
  20. FLUCONAZOLE [Suspect]
  21. ATENOLOL [Suspect]
     Indication: HYPERTENSION
     Route: 048
  22. CANDESARTAN CILEXETIL [Suspect]
     Route: 048
  23. ESOMEPRAZOLE MAGNESIUM [Suspect]
     Route: 048
  24. METOPROLOL [Suspect]
     Route: 048
  25. DIAZEPAM [Suspect]
  26. PREVACID [Suspect]
  27. CELECOXIB [Suspect]
  28. CLOTRIMAZOLE [Suspect]
  29. ERYTHROMYCIN [Suspect]
  30. FLUOXETINE HYDROCHLORIDE [Suspect]
  31. AVELOX [Suspect]
  32. OLMESARTAN [Suspect]
  33. PETHIDINE HYDROCHLORIDE [Suspect]
  34. FUROSEMIDE [Suspect]
  35. ATROPINE SULFATE [Suspect]
  36. BETAMETHASONE [Suspect]
  37. BISOPROLOL FUMARATE [Suspect]
  38. CARISOPRODOL [Suspect]
  39. CEFALEXIN [Suspect]
     Route: 048
  40. CEFAZOLIN [Suspect]
  41. CHLORPHENAMINE MALEATE [Suspect]
  42. HYDROCODONE BITARTRATE [Suspect]
  43. DEXAMETHASONE [Suspect]
  44. ECONAZOLE NITRATE [Suspect]
  45. FEXOFENADINE HYDROCHLORIDE [Suspect]
  46. FLUTICASONE W/SALMETEROL [Suspect]
  47. GUAIFENESIN [Suspect]
  48. EXGEST LA [Suspect]
  49. GUAIFENESIN W/PSEUDOEPHEDRINE [Suspect]
  50. ZYDONE [Suspect]
  51. LORTAB /00607101/ [Suspect]
  52. LORCET-HD [Suspect]
  53. METAXALONE [Suspect]
  54. MOMETASONE FUROATE [Suspect]
  55. MUPIROCIN [Suspect]
  56. OSELTAMIVIR [Suspect]
  57. PERCOCET /00446701/ [Suspect]
  58. QUININE SULFATE [Suspect]
  59. ROFECOXIB [Suspect]
  60. SUCRALFATE [Suspect]
  61. BACTRIM DS [Suspect]
  62. TRIAMCINOLONE ACETONIDE [Suspect]
  63. TRIAZOLAM [Suspect]
  64. ALPRAZOLAM [Suspect]

REACTIONS (24)
  - Drug interaction [None]
  - Deep vein thrombosis [None]
  - Arthritis [None]
  - Blood chloride decreased [None]
  - Blood cholesterol increased [None]
  - Bronchitis [None]
  - Cholelithiasis [None]
  - Glaucoma [None]
  - Neuropathy peripheral [None]
  - Osteoarthritis [None]
  - Phlebitis [None]
  - Purpura senile [None]
  - Resorption bone increased [None]
  - Tarsal tunnel syndrome [None]
  - Thrombophlebitis superficial [None]
  - Vasculitis [None]
  - Vertigo positional [None]
  - Vestibular disorder [None]
  - Blood alkaline phosphatase increased [None]
  - Renal failure [None]
  - Blood sodium decreased [None]
  - Alanine aminotransferase increased [None]
  - Aspartate aminotransferase increased [None]
  - Dizziness [None]
